FAERS Safety Report 8128388-9 (Version None)
Quarter: 2012Q1

REPORT INFORMATION
  Report Type: 
  Country: None (occurrence: None)
  Receive Date: 20120210
  Receipt Date: 20120127
  Transmission Date: 20120608
  Serious: Yes (Other)
  Sender: FDA-Public Use
  Company Number: JP-ROCHE-1018760

PATIENT
  Sex: Female
  Weight: 46 kg

DRUGS (5)
  1. OXALIPLATIN [Suspect]
     Indication: COLON CANCER RECURRENT
     Dosage: DOSAGE IS UNCERTAIN.
     Route: 041
     Dates: start: 20100714, end: 20100725
  2. XELODA [Suspect]
     Dosage: DOSAGE IS UNCERTAIN.
     Route: 048
     Dates: start: 20101112, end: 20111011
  3. MAGNESIUM SULFATE [Concomitant]
     Route: 048
     Dates: start: 20090727, end: 20120114
  4. AVASTIN [Suspect]
     Indication: COLON CANCER RECURRENT
     Dosage: DOSAGE IS UNCERTAIN.
     Route: 041
     Dates: start: 20100714, end: 20111011
  5. XELODA [Suspect]
     Indication: COLON CANCER RECURRENT
     Dosage: DOSAGE IS UNCERTAIN.
     Route: 048
     Dates: start: 20100714, end: 20101001

REACTIONS (7)
  - BALANCE DISORDER [None]
  - CEREBRAL HAEMORRHAGE [None]
  - HYPERTENSION [None]
  - NEUTROPHIL COUNT DECREASED [None]
  - HALLUCINATION [None]
  - DEMENTIA WITH LEWY BODIES [None]
  - GAIT DISTURBANCE [None]
